FAERS Safety Report 6285245-0 (Version None)
Quarter: 2009Q3

REPORT INFORMATION
  Report Type: 
  Country: None (occurrence: None)
  Receive Date: 20090727
  Receipt Date: 20090720
  Transmission Date: 20100115
  Serious: Yes (Hospitalization, Other)
  Sender: FDA-Public Use
  Company Number: GB-TEVA-202875ISR

PATIENT
  Sex: Female

DRUGS (2)
  1. METHOTREXATE [Suspect]
  2. ABATACEPT [Suspect]

REACTIONS (1)
  - CARDIAC FAILURE [None]
